FAERS Safety Report 10882062 (Version 1)
Quarter: 2015Q1

REPORT INFORMATION
  Report Type: Spontaneous
  Country: JP (occurrence: JP)
  Receive Date: 20150303
  Receipt Date: 20150303
  Transmission Date: 20150721
  Serious: Yes (Disabling, Other)
  Sender: FDA-Public Use
  Company Number: JP-SA-2015SA024453

PATIENT
  Age: 46 Year
  Sex: Female
  Weight: 48 kg

DRUGS (3)
  1. GASCON [Concomitant]
     Active Substance: DIMETHICONE
     Dosage: DOSE: 3 TABLETS/DAY?STRENGTH: 40 MG
     Route: 048
  2. TAXOTERE [Suspect]
     Active Substance: DOCETAXEL
     Indication: BREAST CANCER
     Route: 041
     Dates: start: 20150127, end: 20150127
  3. PARIET [Concomitant]
     Active Substance: RABEPRAZOLE SODIUM
     Dosage: STRENGTH: 10 MG
     Route: 048

REACTIONS (3)
  - Punctate keratitis [Recovered/Resolved]
  - Conjunctivitis [Recovered/Resolved]
  - Palmar-plantar erythrodysaesthesia syndrome [Recovering/Resolving]

NARRATIVE: CASE EVENT DATE: 20150128
